FAERS Safety Report 8358093-5 (Version None)
Quarter: 2012Q2

REPORT INFORMATION
  Report Type: 
  Country: None (occurrence: None)
  Receive Date: 20120514
  Receipt Date: 20120508
  Transmission Date: 20120825
  Serious: Yes (Hospitalization, Other)
  Sender: FDA-Public Use
  Company Number: US-PURDUE-USA-2012-0085741

PATIENT
  Sex: Female

DRUGS (2)
  1. OXYCONTIN [Suspect]
     Indication: PRODUCT USED FOR UNKNOWN INDICATION
     Dosage: 160 MG,
  2. OXYCONTIN [Suspect]
     Dosage: 80 MG, TID

REACTIONS (5)
  - ABDOMINAL PAIN UPPER [None]
  - PAIN [None]
  - HEADACHE [None]
  - BILE DUCT OBSTRUCTION [None]
  - CHOLELITHIASIS [None]
